FAERS Safety Report 15613092 (Version 1)
Quarter: 2018Q4

REPORT INFORMATION
  Report Type: Spontaneous
  Country: CN (occurrence: CN)
  Receive Date: 20181113
  Receipt Date: 20181113
  Transmission Date: 20190205
  Serious: Yes (Hospitalization)
  Sender: FDA-Public Use
  Company Number: CN-JNJFOC-20181108463

PATIENT
  Age: 67 Year
  Sex: Female
  Weight: 51 kg

DRUGS (5)
  1. METRONIDAZOLE. [Concomitant]
     Active Substance: METRONIDAZOLE
     Indication: BACTERIAL INFECTION
     Route: 041
     Dates: start: 20180202, end: 20180203
  2. LEVAMLODIPINE [Concomitant]
     Active Substance: LEVAMLODIPINE
     Indication: HYPERTENSION
     Route: 065
     Dates: start: 20180202
  3. SULPERAZONE [Concomitant]
     Active Substance: CEFOPERAZONE SODIUM\SULBACTAM SODIUM
     Indication: BACTERIAL INFECTION
     Route: 041
     Dates: start: 20180202, end: 20180209
  4. ITRACONAZOLE. [Suspect]
     Active Substance: ITRACONAZOLE
     Indication: ORAL FUNGAL INFECTION
     Route: 048
     Dates: start: 20180207, end: 20180209
  5. IRBESARTAN. [Concomitant]
     Active Substance: IRBESARTAN
     Indication: HYPERTENSION
     Route: 065
     Dates: start: 20180202

REACTIONS (7)
  - Decreased appetite [Recovering/Resolving]
  - Abdominal distension [Recovering/Resolving]
  - Hypokalaemia [Recovering/Resolving]
  - Depressed mood [Unknown]
  - Arrhythmia [Unknown]
  - Vomiting [Recovering/Resolving]
  - Nausea [Recovering/Resolving]

NARRATIVE: CASE EVENT DATE: 20180209
